FAERS Safety Report 10493517 (Version 1)
Quarter: 2014Q4

REPORT INFORMATION
  Report Type: Spontaneous
  Country: US (occurrence: US)
  Receive Date: 20141002
  Receipt Date: 20141002
  Transmission Date: 20150528
  Serious: No
  Sender: FDA-Public Use
  Company Number: US-GLAXOSMITHKLINE-A1084991A

PATIENT
  Age: 45 Year
  Sex: Female

DRUGS (3)
  1. VENTOLIN [Suspect]
     Active Substance: ALBUTEROL SULFATE
     Dates: start: 2012
  2. THYROID [Concomitant]
     Active Substance: LEVOTHYROXINE\LIOTHYRONINE
  3. ADVAIR HFA [Suspect]
     Active Substance: FLUTICASONE PROPIONATE\SALMETEROL XINAFOATE
     Indication: ASTHMA
     Route: 055

REACTIONS (13)
  - Underdose [Unknown]
  - Nasopharyngitis [Unknown]
  - Allergic sinusitis [Unknown]
  - Off label use [Unknown]
  - Therapeutic response unexpected [Unknown]
  - Aphasia [Unknown]
  - Drug ineffective [Unknown]
  - Laryngitis [Unknown]
  - Vocal cord disorder [Unknown]
  - Sneezing [Unknown]
  - Gastrooesophageal reflux disease [Unknown]
  - Cough [Unknown]
  - Malaise [Unknown]
